FAERS Safety Report 8095273-0 (Version None)
Quarter: 2012Q1

REPORT INFORMATION
  Report Type: 
  Country: None (occurrence: None)
  Receive Date: 20120129
  Receipt Date: 20111219
  Transmission Date: 20120608
  Serious: No
  Sender: FDA-Public Use
  Company Number: US-ABBOTT-11P-163-0884736-00

PATIENT
  Age: 52 Year
  Sex: Female

DRUGS (5)
  1. HUMIRA [Suspect]
     Indication: RHEUMATOID ARTHRITIS
     Dates: start: 20110701
  2. WELLBUTRIN [Concomitant]
     Indication: DEPRESSION
     Dates: end: 20111001
  3. ZOCOR [Concomitant]
     Indication: BLOOD CHOLESTEROL INCREASED
     Route: 048
  4. ZOLOFT [Concomitant]
     Indication: DEPRESSION
     Route: 048
     Dates: start: 20111001
  5. TRAMADOL HCL [Concomitant]
     Indication: PAIN
     Dosage: 3 OR 4 TIMES A DAY, AS REQUIRED
     Route: 048

REACTIONS (1)
  - INJECTION SITE PAIN [None]
